FAERS Safety Report 10531728 (Version 1)
Quarter: 2014Q4

REPORT INFORMATION
  Report Type: Report from Study
  Country: BR (occurrence: BR)
  Receive Date: 20141021
  Receipt Date: 20141021
  Transmission Date: 20150529
  Serious: Yes (Hospitalization, Other)
  Sender: FDA-Public Use
  Company Number: BR-ABBVIE-14K-020-1296815-00

PATIENT
  Age: 43 Year
  Sex: Female
  Weight: 73 kg

DRUGS (11)
  1. HUMIRA [Suspect]
     Active Substance: ADALIMUMAB
     Indication: RHEUMATOID ARTHRITIS
     Route: 058
     Dates: start: 20100101
  2. ALENDRONATE [Concomitant]
     Active Substance: ALENDRONATE SODIUM
     Indication: BONE DISORDER
     Route: 048
     Dates: start: 2010
  3. METHOTREXATE [Concomitant]
     Active Substance: METHOTREXATE
     Indication: RHEUMATOID ARTHRITIS
     Route: 048
     Dates: start: 2010
  4. CLOPIDOGREL [Concomitant]
     Active Substance: CLOPIDOGREL BISULFATE
     Indication: PRODUCT USED FOR UNKNOWN INDICATION
     Route: 048
     Dates: start: 2010
  5. MELOXICAM. [Concomitant]
     Active Substance: MELOXICAM
     Indication: PAIN
     Route: 048
     Dates: start: 2010
  6. SIMVASTATIN. [Concomitant]
     Active Substance: SIMVASTATIN
     Indication: CARDIAC DISORDER
     Route: 048
     Dates: start: 2010
  7. CALCIUM CARBONATE AND VITAMIN D [Concomitant]
     Indication: BLOOD CALCIUM
     Dosage: FORM STRENGTH 1250MG / 400IU
     Route: 048
     Dates: start: 2010
  8. ACETYLSALICYLIC ACID [Concomitant]
     Active Substance: ASPIRIN
     Indication: POOR PERIPHERAL CIRCULATION
     Route: 048
     Dates: start: 2010
  9. SUSTRATE [Concomitant]
     Active Substance: PROPATYL NITRATE
     Indication: CARDIAC DISORDER
     Route: 048
     Dates: start: 2010
  10. METOPROLOL [Concomitant]
     Active Substance: METOPROLOL
     Indication: CARDIAC DISORDER
     Route: 048
     Dates: start: 2010
  11. FOLIC ACID. [Concomitant]
     Active Substance: FOLIC ACID
     Indication: LIVER DISORDER
     Route: 048
     Dates: start: 2010

REACTIONS (12)
  - Arthropathy [Unknown]
  - Tooth disorder [Recovering/Resolving]
  - Visual impairment [Not Recovered/Not Resolved]
  - Pruritus [Recovering/Resolving]
  - Arthropod bite [Recovering/Resolving]
  - Femur fracture [Unknown]
  - Drug effect incomplete [Not Recovered/Not Resolved]
  - Allergy to arthropod sting [Recovering/Resolving]
  - Infarction [Recovered/Resolved]
  - Vision blurred [Not Recovered/Not Resolved]
  - Skin lesion [Recovering/Resolving]
  - Anxiety [Recovered/Resolved]

NARRATIVE: CASE EVENT DATE: 2010
